FAERS Safety Report 9067741 (Version 1)
Quarter: 2013Q1

REPORT INFORMATION
  Report Type: Spontaneous
  Country: US (occurrence: US)
  Receive Date: 20130206
  Receipt Date: 20130206
  Transmission Date: 20140127
  Serious: No
  Sender: FDA-Public Use
  Company Number: US-ASTRAZENECA-2013SE07134

PATIENT
  Age: 46 Year
  Sex: Male
  Weight: 129.3 kg

DRUGS (4)
  1. SEROQUEL XR [Suspect]
     Indication: ANXIETY
     Route: 048
     Dates: start: 201301, end: 201301
  2. SEROQUEL XR [Suspect]
     Indication: ABNORMAL BEHAVIOUR
     Route: 048
     Dates: start: 201301, end: 201301
  3. TEKTURNA HCT [Concomitant]
     Indication: BLOOD PRESSURE ABNORMAL
     Dosage: 150./12.5 MG, DAILY
     Route: 048
  4. METFORMIN [Concomitant]
     Indication: DIABETES MELLITUS
     Route: 048

REACTIONS (5)
  - Road traffic accident [Unknown]
  - Adverse event [Unknown]
  - Lethargy [Unknown]
  - Blood glucose increased [Unknown]
  - Therapeutic response unexpected [Recovered/Resolved]
